FAERS Safety Report 9215935 (Version 3)
Quarter: 2013Q2

REPORT INFORMATION
  Report Type: Spontaneous
  Country: GB (occurrence: None)
  Receive Date: 20130404
  Receipt Date: 20130618
  Transmission Date: 20140414
  Serious: Yes (Other)
  Sender: FDA-Public Use
  Company Number: 2013AP004017

PATIENT
  Age: 73 Year
  Sex: Male

DRUGS (7)
  1. ALENDRONATE (ALENDRONATE SODIUM) [Suspect]
     Dates: start: 200803
  2. ADCAL-D3 (LEKOVIT CA) [Suspect]
     Dates: start: 200803
  3. QUESTRAN [Suspect]
     Dosage: POW_POSOL
     Route: 048
     Dates: start: 1990, end: 201005
  4. VITAMIN B12 /00056201/ (CYANOCOBALAMIN) [Concomitant]
  5. COLOFAC /00139402/ (MEBEVERINE HYDROCHLORIDE) [Concomitant]
  6. BENDROFLUMETHIAZIDE (BENDROFLUMETHIAZIDE) [Concomitant]
  7. CODEINE (CODEINE) [Concomitant]

REACTIONS (4)
  - Hypertension [None]
  - Drug interaction [None]
  - Nephrolithiasis [None]
  - Osteoporosis [None]
